FAERS Safety Report 13804329 (Version 2)
Quarter: 2017Q3

REPORT INFORMATION
  Report Type: Spontaneous
  Country: US (occurrence: US)
  Receive Date: 20170728
  Receipt Date: 20170802
  Transmission Date: 20171127
  Serious: No
  Sender: FDA-Public Use
  Company Number: US-009507513-1707USA009448

PATIENT
  Age: 50 Year
  Sex: Male

DRUGS (6)
  1. PRIMAXIN IV [Suspect]
     Active Substance: CILASTATIN SODIUM\IMIPENEM
     Indication: CENTRAL NERVOUS SYSTEM INFECTION
     Dosage: 500 MG, Q6
     Route: 042
  2. AMIKACIN [Concomitant]
     Active Substance: AMIKACIN
     Indication: NOCARDIOSIS
  3. AMIKACIN [Concomitant]
     Active Substance: AMIKACIN
     Indication: CENTRAL NERVOUS SYSTEM INFECTION
     Dosage: 500 MG, Q12
     Route: 042
  4. PRIMAXIN IV [Suspect]
     Active Substance: CILASTATIN SODIUM\IMIPENEM
     Indication: NOCARDIOSIS
  5. SULFAMETHOXAZOLE (+) TRIMETHOPRIM [Concomitant]
     Active Substance: SULFAMETHOXAZOLE\TRIMETHOPRIM
     Indication: NOCARDIOSIS
  6. SULFAMETHOXAZOLE (+) TRIMETHOPRIM [Concomitant]
     Active Substance: SULFAMETHOXAZOLE\TRIMETHOPRIM
     Indication: CENTRAL NERVOUS SYSTEM INFECTION
     Dosage: 400 MG, Q8
     Route: 042

REACTIONS (1)
  - Antimicrobial susceptibility test resistant [Unknown]
